FAERS Safety Report 8607544-7 (Version None)
Quarter: 2012Q3

REPORT INFORMATION
  Report Type: 
  Country: None (occurrence: None)
  Receive Date: 20120821
  Receipt Date: 20120813
  Transmission Date: 20120928
  Serious: Yes (Other)
  Sender: FDA-Public Use
  Company Number: BR-BAYER-2012-082749

PATIENT
  Age: 67 Year
  Sex: Male
  Weight: 75 kg

DRUGS (7)
  1. METFORMIN HCL [Interacting]
     Indication: DIABETES MELLITUS
     Dosage: 85 MG, TID
     Route: 048
  2. PROPRANOLOL [Interacting]
     Indication: HYPERTENSION
     Dosage: 40 MG, BID
     Route: 048
     Dates: start: 20040101
  3. GLIMEPIRIDE [Interacting]
     Indication: DIABETES MELLITUS
     Dosage: 4 MG, BID
     Route: 048
  4. LEVOTHYROXINE SODIUM [Concomitant]
     Indication: THYROID DISORDER
     Dosage: 0.05 MG, QD
     Route: 048
     Dates: start: 20120601
  5. NEXAVAR [Suspect]
     Indication: HEPATIC NEOPLASM MALIGNANT
     Dosage: 400 MG, BID
     Route: 048
     Dates: start: 20120101
  6. DOXAZOSIN MESYLATE [Concomitant]
     Indication: PROSTATIC DISORDER
     Dosage: 2 MG, QD
     Route: 048
     Dates: start: 20100101
  7. METFORMIN HCL [Interacting]
     Dosage: 85 MG, TID
     Route: 048

REACTIONS (6)
  - CONVULSION [None]
  - BLOOD GLUCOSE ABNORMAL [None]
  - GAIT DISTURBANCE [None]
  - ASTHENIA [None]
  - SPEECH DISORDER [None]
  - HYPERTENSION [None]
